FAERS Safety Report 7454531-0 (Version None)
Quarter: 2011Q2

REPORT INFORMATION
  Report Type: 
  Country: None (occurrence: None)
  Receive Date: 20110503
  Receipt Date: 20110422
  Transmission Date: 20111010
  Serious: Yes (Other)
  Sender: FDA-Public Use
  Company Number: US-ELI_LILLY_AND_COMPANY-US201104006839

PATIENT
  Age: 59 Year
  Sex: Female

DRUGS (5)
  1. EFFIENT [Suspect]
     Dosage: 30 MG, OTHER
     Route: 065
     Dates: start: 20110418
  2. EFFIENT [Suspect]
     Indication: ACUTE MYOCARDIAL INFARCTION
     Dosage: 10 MG, UNKNOWN
     Route: 065
     Dates: start: 20110416
  3. INTEGRILIN [Concomitant]
     Dosage: UNK, UNKNOWN
     Route: 065
     Dates: start: 20110416
  4. PLAVIX [Concomitant]
     Dosage: 75 MG, UNKNOWN
     Route: 065
     Dates: start: 20101101
  5. HEPARIN [Concomitant]
     Dosage: UNK, QOD
     Route: 065
     Dates: start: 20110416

REACTIONS (4)
  - CORONARY ARTERY OCCLUSION [None]
  - ARTERIAL RESTENOSIS [None]
  - BLOOD COUNT ABNORMAL [None]
  - COLON CANCER [None]
